FAERS Safety Report 5986472-X (Version None)
Quarter: 2008Q4

REPORT INFORMATION
  Report Type: 
  Country: None (occurrence: None)
  Receive Date: 20081209
  Receipt Date: 20080529
  Transmission Date: 20090506
  Serious: Yes (Hospitalization)
  Sender: FDA-Public Use
  Company Number: US-AMGEN-QUU279050

PATIENT
  Sex: Female
  Weight: 53.1 kg

DRUGS (5)
  1. ENBREL [Suspect]
     Indication: RHEUMATOID ARTHRITIS
     Route: 058
     Dates: start: 20000204, end: 20080220
  2. FOLIC ACID [Concomitant]
     Route: 048
  3. LIPITOR [Concomitant]
  4. COZAAR [Concomitant]
     Route: 048
  5. HYDROCHLOROTHIAZIDE [Concomitant]

REACTIONS (6)
  - ESCHERICHIA BACTERAEMIA [None]
  - FALL [None]
  - KLEBSIELLA BACTERAEMIA [None]
  - NON-CARDIAC CHEST PAIN [None]
  - PELVIC FRACTURE [None]
  - ULNA FRACTURE [None]
